FAERS Safety Report 4935118-8 (Version None)
Quarter: 2006Q1

REPORT INFORMATION
  Report Type: 
  Country: None (occurrence: None)
  Receive Date: 20060302
  Receipt Date: 20060217
  Transmission Date: 20060701
  Serious: Yes (Death, Hospitalization, Other)
  Sender: FDA-Public Use
  Company Number: 2006025769

PATIENT
  Age: 44 Year
  Sex: Male

DRUGS (1)
  1. BEXTRA [Suspect]
     Indication: ANALGESIC EFFECT

REACTIONS (1)
  - CEREBROVASCULAR ACCIDENT [None]
